FAERS Safety Report 6712395-4 (Version None)
Quarter: 2010Q2

REPORT INFORMATION
  Report Type: 
  Country: None (occurrence: None)
  Receive Date: 20100505
  Receipt Date: 20100423
  Transmission Date: 20101027
  Serious: Yes (Death, Hospitalization)
  Sender: FDA-Public Use
  Company Number: DE-GENENTECH-295464

PATIENT
  Sex: Male
  Weight: 69 kg

DRUGS (6)
  1. RITUXIMAB [Suspect]
     Indication: CHRONIC LYMPHOCYTIC LEUKAEMIA
     Dosage: 656 MG, Q4W
     Route: 065
     Dates: start: 20090930, end: 20091102
  2. BENDAMUSTINE [Suspect]
     Indication: CHRONIC LYMPHOCYTIC LEUKAEMIA
     Dosage: 79 MG, UNK
     Route: 065
     Dates: start: 20090930, end: 20091029
  3. PREDNISOLON [Concomitant]
     Indication: CHRONIC LYMPHOCYTIC LEUKAEMIA
     Dosage: UNK
  4. AMOXICILLIN [Concomitant]
     Indication: INFECTION
     Dosage: 1000 MG, UNK
     Dates: start: 20091109
  5. SPIRO COMP. FORTE-RATIOPHARM [Concomitant]
     Indication: POLYURIA
     Dosage: 70 MG, UNK
     Dates: start: 20091109
  6. LISINOPRIL AND HYDROCHLOROTHIAZIDE [Concomitant]
     Indication: HYPERTENSION
     Dosage: 22.5 MG, UNK

REACTIONS (5)
  - DEEP VEIN THROMBOSIS [None]
  - MULTI-ORGAN FAILURE [None]
  - PNEUMONIA PRIMARY ATYPICAL [None]
  - PULMONARY EMBOLISM [None]
  - SEPSIS [None]
